FAERS Safety Report 11799100 (Version 2)
Quarter: 2015Q4

REPORT INFORMATION
  Report Type: Spontaneous
  Country: DE (occurrence: DE)
  Receive Date: 20151203
  Receipt Date: 20151214
  Transmission Date: 20160305
  Serious: Yes (Other)
  Sender: FDA-Public Use
  Company Number: DE-ALEXION PHARMACEUTICALS INC-A201504341

PATIENT
  Age: 62 Year
  Sex: Male

DRUGS (16)
  1. BICANORM [Concomitant]
     Active Substance: SODIUM BICARBONATE
     Dosage: UNK, BID
     Route: 048
  2. JURNISTA [Concomitant]
     Active Substance: HYDROMORPHONE HYDROCHLORIDE
     Dosage: 8 MG, UNK
     Route: 065
  3. PREDNISOLONE 7.5 [Concomitant]
     Dosage: 1 UNK, QD
     Route: 048
  4. URSOFALK 500 [Concomitant]
     Dosage: 1 UNK, BID
     Route: 048
  5. PANTOPRAZOLE 40 [Concomitant]
     Dosage: QD
     Route: 048
  6. COTRIM D.S. [Concomitant]
     Active Substance: SULFAMETHOXAZOLE\TRIMETHOPRIM
     Dosage: 2 UNK, 1 ONLY MON/TUE
     Route: 048
  7. SOLIRIS [Suspect]
     Active Substance: ECULIZUMAB
     Dosage: 900 MG, QW
     Route: 042
     Dates: start: 20150513
  8. SOLIRIS [Suspect]
     Active Substance: ECULIZUMAB
     Dosage: 900 UNK, UNK
     Route: 042
     Dates: start: 20150701
  9. MYFORTIC 180 MMF [Concomitant]
     Route: 048
  10. DEKRISTOL 20000 [Concomitant]
     Dosage: 1 UNK, QW
     Route: 048
  11. SOLIRIS [Suspect]
     Active Substance: ECULIZUMAB
     Indication: HAEMOLYTIC URAEMIC SYNDROME
     Dosage: 900 MG, QW
     Route: 042
     Dates: start: 20150423
  12. VORICONAZOLE. [Suspect]
     Active Substance: VORICONAZOLE
     Indication: ANTI-INFECTIVE THERAPY
     Dosage: UNK
     Route: 065
     Dates: start: 20150612, end: 20150714
  13. SOLIRIS [Suspect]
     Active Substance: ECULIZUMAB
     Dosage: 900 MG, UNK
     Route: 042
     Dates: start: 20150603
  14. SOLIRIS [Suspect]
     Active Substance: ECULIZUMAB
     Dosage: 900 MG, QW
     Route: 042
     Dates: start: 20150507
  15. BISOPROLOL [Concomitant]
     Active Substance: BISOPROLOL
     Dosage: 2.5 MG, 0.5 QD
     Route: 048
  16. TOREM          200                    /01036501/ [Concomitant]
     Dosage: 0.5 UNK, QD
     Route: 065

REACTIONS (7)
  - Inappropriate schedule of drug administration [Recovered/Resolved]
  - Psychomotor retardation [Unknown]
  - Bronchopulmonary aspergillosis [Recovering/Resolving]
  - Neuropathy peripheral [Unknown]
  - Plasma cell myeloma [Unknown]
  - Asterixis [Unknown]
  - Unevaluable event [Unknown]

NARRATIVE: CASE EVENT DATE: 2015
